FAERS Safety Report 20823849 (Version 18)
Quarter: 2023Q2

REPORT INFORMATION
  Report Type: Report from Study
  Country: CL (occurrence: CL)
  Receive Date: 20220513
  Receipt Date: 20230626
  Transmission Date: 20230721
  Serious: Yes (Other)
  Sender: FDA-Public Use
  Company Number: CL-NOVARTISPH-NVSC2021CL308413

PATIENT
  Age: 66 Year
  Sex: Female

DRUGS (15)
  1. KISQALI [Suspect]
     Active Substance: RIBOCICLIB
     Indication: Breast cancer
     Dosage: 600 MG, QD
     Route: 048
     Dates: start: 20211008
  2. KISQALI [Suspect]
     Active Substance: RIBOCICLIB
     Dosage: 400 MG, QD
     Route: 048
     Dates: start: 20211008
  3. KISQALI [Suspect]
     Active Substance: RIBOCICLIB
     Dosage: 400 MG, QD
     Route: 048
  4. KISQALI [Suspect]
     Active Substance: RIBOCICLIB
     Dosage: 400 MG, QD (2 TABLET EVERY 1 DAY)
     Route: 048
     Dates: start: 20211106
  5. KISQALI [Suspect]
     Active Substance: RIBOCICLIB
     Dosage: 200 MG, Q3W (2 TABLET EVERY 1 DAY, FOR 3 WEEKS)
     Route: 048
     Dates: start: 20211126
  6. KISQALI [Suspect]
     Active Substance: RIBOCICLIB
     Dosage: 600 MG
     Route: 065
  7. KISQALI [Suspect]
     Active Substance: RIBOCICLIB
     Dosage: 400 MG, QD
     Route: 048
     Dates: start: 20230505
  8. AMLODIPINE [Suspect]
     Active Substance: AMLODIPINE BESYLATE
     Indication: Product used for unknown indication
     Dosage: 10 MG, QD (HALF A TABLET A DAY)
     Route: 065
  9. FULVESTRANT [Suspect]
     Active Substance: FULVESTRANT
     Indication: Breast cancer
     Dosage: UNK
     Route: 030
     Dates: start: 20211007
  10. FULVESTRANT [Suspect]
     Active Substance: FULVESTRANT
     Dosage: 2 APPLICATIONS PER MONTH
     Route: 065
  11. FULVESTRANT [Suspect]
     Active Substance: FULVESTRANT
     Dosage: UNK
     Route: 065
  12. LOSARTAN [Concomitant]
     Active Substance: LOSARTAN
     Indication: Product used for unknown indication
     Dosage: 50 MG, BID
     Route: 065
  13. OMEPRAZOLE [Concomitant]
     Active Substance: OMEPRAZOLE
     Indication: Product used for unknown indication
     Dosage: 20 MG, QD
     Route: 065
  14. VITAMIN D [Concomitant]
     Active Substance: VITAMIN D NOS
     Indication: Product used for unknown indication
     Dosage: 800 IU, QD
     Route: 065
  15. SERTAC [Concomitant]
     Indication: Product used for unknown indication
     Dosage: 200 MG, QD
     Route: 065

REACTIONS (42)
  - Electrocardiogram ST segment elevation [Unknown]
  - Seizure [Unknown]
  - Electrocardiogram QT prolonged [Unknown]
  - Hypersomnia [Unknown]
  - Myopia [Not Recovered/Not Resolved]
  - Haematocrit decreased [Unknown]
  - Haemoglobin abnormal [Unknown]
  - Neutrophil count abnormal [Unknown]
  - Anisocytosis [Unknown]
  - Poikilocytosis [Unknown]
  - Elliptocytosis [Unknown]
  - Red cell distribution width abnormal [Unknown]
  - Electrocardiogram abnormal [Unknown]
  - Reading disorder [Unknown]
  - Feeling abnormal [Unknown]
  - Astigmatism [Not Recovered/Not Resolved]
  - General physical health deterioration [Unknown]
  - Lymphocyte count decreased [Unknown]
  - Full blood count abnormal [Unknown]
  - Fall [Unknown]
  - Gait disturbance [Unknown]
  - Red blood cell sedimentation rate increased [Unknown]
  - Immune system disorder [Unknown]
  - Anxiety [Unknown]
  - Memory impairment [Unknown]
  - Malaise [Unknown]
  - Ill-defined disorder [Unknown]
  - Red blood cell count decreased [Unknown]
  - Blood alkaline phosphatase increased [Unknown]
  - Gamma-glutamyltransferase increased [Unknown]
  - Aspartate aminotransferase increased [Unknown]
  - White blood cell count decreased [Unknown]
  - Nausea [Unknown]
  - Fatigue [Unknown]
  - Asthenia [Unknown]
  - Vomiting [Unknown]
  - Dizziness [Unknown]
  - Dysphonia [Unknown]
  - Aphonia [Unknown]
  - Cough [Unknown]
  - Product distribution issue [Unknown]
  - Product dose omission in error [Unknown]

NARRATIVE: CASE EVENT DATE: 20211104
